FAERS Safety Report 5488817-6 (Version None)
Quarter: 2007Q4

REPORT INFORMATION
  Report Type: 
  Country: None (occurrence: None)
  Receive Date: 20071016
  Receipt Date: 20071003
  Transmission Date: 20080405
  Serious: Yes (Death, Other)
  Sender: FDA-Public Use
  Company Number: 2007US02460

PATIENT
  Age: 69 Year
  Sex: Female

DRUGS (1)
  1. AMBISOME [Suspect]
     Indication: ZYGOMYCOSIS
     Dosage: 10 MG/KG, UID/QD, IV NOS; 5 MG/KG, UID/QD, IV NOS
     Route: 042
     Dates: start: 20070920

REACTIONS (2)
  - MULTI-ORGAN FAILURE [None]
  - RENAL FAILURE [None]
